FAERS Safety Report 5761972-6 (Version None)
Quarter: 2008Q2

REPORT INFORMATION
  Report Type: 
  Country: None (occurrence: None)
  Receive Date: 20080603
  Receipt Date: 20080528
  Transmission Date: 20081010
  Serious: Yes (Death)
  Sender: FDA-Public Use
  Company Number: 163-21880-08040769

PATIENT
  Age: 58 Year
  Sex: Female

DRUGS (1)
  1. REVLIMID [Suspect]
     Indication: MULTIPLE MYELOMA
     Dosage: 10 MG, QD, ORAL
     Route: 048
     Dates: start: 20080318, end: 20080301

REACTIONS (5)
  - DISEASE PROGRESSION [None]
  - LOCALISED INFECTION [None]
  - MULTIPLE MYELOMA [None]
  - OEDEMA [None]
  - RENAL FAILURE [None]
